FAERS Safety Report 12113589 (Version 1)
Quarter: 2016Q1

REPORT INFORMATION
  Report Type: Spontaneous
  Country: GB (occurrence: GB)
  Receive Date: 20160225
  Receipt Date: 20160225
  Transmission Date: 20160526
  Serious: Yes (Other)
  Sender: FDA-Public Use
  Company Number: GB-ROCHE-1716046

PATIENT
  Sex: Male

DRUGS (3)
  1. LUCENTIS [Suspect]
     Active Substance: RANIBIZUMAB
     Indication: AGE-RELATED MACULAR DEGENERATION
     Route: 065
     Dates: start: 201208
  2. LUCENTIS [Suspect]
     Active Substance: RANIBIZUMAB
     Dosage: 10TH INJECTION
     Route: 065
     Dates: start: 20140419
  3. LUCENTIS [Suspect]
     Active Substance: RANIBIZUMAB
     Route: 065
     Dates: start: 20140906

REACTIONS (1)
  - Visual acuity reduced [Unknown]
